FAERS Safety Report 24429257 (Version 3)
Quarter: 2025Q1

REPORT INFORMATION
  Report Type: Spontaneous
  Country: US (occurrence: US)
  Receive Date: 20241011
  Receipt Date: 20250107
  Transmission Date: 20250408
  Serious: No
  Sender: BRISTOL-MYERS SQUIBB COMPANY
  Company Number: US-BRISTOL-MYERS SQUIBB COMPANY-2024-160606

PATIENT
  Age: 84 Year
  Sex: Female
  Weight: 63.5 kg

DRUGS (1)
  1. REVLIMID [Suspect]
     Active Substance: LENALIDOMIDE
     Indication: Follicular lymphoma stage I
     Dosage: FREQUENCY: 21 DAYS
     Route: 048

REACTIONS (8)
  - Abdominal pain upper [Unknown]
  - Malaise [Unknown]
  - Asthma [Unknown]
  - Constipation [Unknown]
  - Insomnia [Unknown]
  - Cystitis [Unknown]
  - Flatulence [Unknown]
  - White blood cell count decreased [Unknown]
